FAERS Safety Report 9801763 (Version 1)
Quarter: 2014Q1

REPORT INFORMATION
  Report Type: Spontaneous
  Country: US (occurrence: US)
  Receive Date: 20140107
  Receipt Date: 20140107
  Transmission Date: 20141002
  Serious: Yes (Other)
  Sender: FDA-Public Use
  Company Number: PHEH2014US000455

PATIENT
  Sex: Female

DRUGS (1)
  1. RECLAST [Suspect]
     Dosage: UNK
     Route: 042
     Dates: start: 20131220

REACTIONS (11)
  - Thyroid mass [Unknown]
  - Goitre [Unknown]
  - Thyroid disorder [Unknown]
  - Feeling abnormal [Unknown]
  - Bone disorder [Unknown]
  - Back disorder [Unknown]
  - Dysstasia [Unknown]
  - Pain [Unknown]
  - Vomiting [Unknown]
  - Nausea [Unknown]
  - Malaise [Unknown]
